FAERS Safety Report 10162249 (Version 1)
Quarter: 2014Q2

REPORT INFORMATION
  Report Type: Spontaneous
  Country: US (occurrence: US)
  Receive Date: 20140509
  Receipt Date: 20140509
  Transmission Date: 20141212
  Serious: No
  Sender: FDA-Public Use
  Company Number: US-009507513-1404USA015279

PATIENT
  Age: 50 Year
  Sex: Male

DRUGS (2)
  1. EMEND [Suspect]
     Indication: NAUSEA
     Dosage: 1 DF: ONE 125MG CAPSULE ; ONCE DAILY
     Route: 048
     Dates: start: 20140424, end: 20140424
  2. EMEND [Suspect]
     Indication: VOMITING
     Dosage: 1 DF: ONE 80MG CAPSULE, QD
     Route: 048
     Dates: start: 20140425, end: 20140426

REACTIONS (1)
  - Vomiting [Recovering/Resolving]
